FAERS Safety Report 25282927 (Version 3)
Quarter: 2025Q2

REPORT INFORMATION
  Report Type: Spontaneous
  Country: CO (occurrence: CO)
  Receive Date: 20250508
  Receipt Date: 20250515
  Transmission Date: 20250717
  Serious: No
  Sender: PFIZER
  Company Number: CO-PFIZER INC-PV202500052284

PATIENT
  Sex: Male

DRUGS (1)
  1. GENOTROPIN [Suspect]
     Active Substance: SOMATROPIN
     Dosage: 1.0 MG, DAILY

REACTIONS (6)
  - Incorrect dose administered [Unknown]
  - Wrong technique in product usage process [Unknown]
  - Headache [Unknown]
  - Device physical property issue [Unknown]
  - Device leakage [Unknown]
  - Product physical consistency issue [Unknown]

NARRATIVE: CASE EVENT DATE: 20250429
